FAERS Safety Report 10087112 (Version 2)
Quarter: 2014Q2

REPORT INFORMATION
  Report Type: Spontaneous
  Country: IT (occurrence: IT)
  Receive Date: 20140418
  Receipt Date: 20140602
  Transmission Date: 20141212
  Serious: Yes (Death)
  Sender: FDA-Public Use
  Company Number: PHHY2014IT047353

PATIENT
  Age: 66 Year
  Sex: Male

DRUGS (11)
  1. ZOMETA [Suspect]
     Dosage: 4 MG, EVERY 28 DAYS
     Route: 042
     Dates: start: 20140109, end: 20140205
  2. JEVTANA [Suspect]
     Indication: PROSTATE CANCER
     Dosage: 50 MG, CYCLIC
     Route: 042
     Dates: start: 20140115, end: 20140226
  3. OMEPRAZEN [Concomitant]
     Dosage: UNK UKN, UNK
  4. TENORMIN [Concomitant]
     Dosage: UNK UKN, UNK
  5. TARGIN [Concomitant]
     Dosage: UNK UKN, UNK
  6. DELTACORTENE [Concomitant]
     Dosage: UNK UKN, UNK
  7. CO-EFFERALGAN [Concomitant]
     Dosage: UNK UKN, UNK
  8. LYRICA [Concomitant]
     Dosage: UNK UKN, UNK
  9. TRANSTEC [Concomitant]
     Dosage: UNK UKN, UNK
  10. CLEXANE T [Concomitant]
     Dosage: UNK UKN, UNK
  11. ENANTONE [Concomitant]
     Dosage: UNK UKN, UNK

REACTIONS (1)
  - Sudden death [Fatal]
